FAERS Safety Report 6431312-8 (Version None)
Quarter: 2009Q4

REPORT INFORMATION
  Report Type: 
  Country: None (occurrence: None)
  Receive Date: 20091106
  Receipt Date: 20091027
  Transmission Date: 20100525
  Serious: Yes (Hospitalization, Other)
  Sender: FDA-Public Use
  Company Number: CH-PFIZER INC-2009288902

PATIENT
  Age: 46 Year
  Sex: Male
  Weight: 81 kg

DRUGS (9)
  1. ADRIBLASTIN [Suspect]
     Route: 042
  2. CYTOSAR-U [Suspect]
     Route: 042
  3. VINCRISTINE [Suspect]
     Route: 042
  4. PREDNISOLONE AND PREDNISOLONE STEAGLATE [Suspect]
     Route: 048
  5. CYCLOPHOSPHAMIDE [Suspect]
     Route: 042
  6. METHOTREXATE [Suspect]
     Route: 042
  7. NEULASTA [Suspect]
     Indication: CHEMOTHERAPY
     Dosage: 6 MG, UNK
     Route: 058
     Dates: start: 20090508
  8. RITUXIMAB [Suspect]
     Dosage: UNK
     Route: 042
     Dates: start: 20090423
  9. DEXAMETHASONE [Suspect]
     Dosage: 4 MG, UNK
     Route: 042
     Dates: end: 20090507

REACTIONS (2)
  - GUILLAIN-BARRE SYNDROME [None]
  - LEUKOCYTOSIS [None]
